FAERS Safety Report 4615759-8 (Version None)
Quarter: 2005Q2

REPORT INFORMATION
  Report Type: 
  Country: None (occurrence: None)
  Receive Date: 20050310
  Receipt Date: 20050127
  Transmission Date: 20051028
  Serious: No
  Sender: FDA-Public Use
  Company Number: A03200500284

PATIENT
  Sex: Female

DRUGS (2)
  1. ELOXATIN [Suspect]
     Dosage: INTRAVENOUS NOS
     Route: 042
  2. CAPECITABINE [Concomitant]

REACTIONS (3)
  - BLADDER DISORDER [None]
  - CYSTITIS INTERSTITIAL [None]
  - CYSTITIS NONINFECTIVE [None]
